FAERS Safety Report 12300380 (Version 1)
Quarter: 2016Q2

REPORT INFORMATION
  Report Type: Spontaneous
  Country: FR (occurrence: None)
  Receive Date: 20160422
  Receipt Date: 20160422
  Transmission Date: 20160815
  Serious: Yes (Other)
  Sender: FDA-Public Use
  Company Number: 8078000

PATIENT
  Age: 40 Year
  Sex: Female

DRUGS (4)
  1. GONAL-F [Suspect]
     Active Substance: FOLLITROPIN
     Indication: BLOOD FOLLICLE STIMULATING HORMONE
     Dates: start: 20160321, end: 20160401
  2. OVITRELLE(CHORIOGONADOTROPIN ALFA) [Suspect]
     Active Substance: CHORIOGONADOTROPIN ALFA
     Indication: BLOOD FOLLICLE STIMULATING HORMONE
     Dates: start: 20160401, end: 20160401
  3. OVITRELLE(CHORIOGONADOTROPIN ALFA) [Suspect]
     Active Substance: CHORIOGONADOTROPIN ALFA
     Indication: SEXUALLY ACTIVE
     Dates: start: 20160401, end: 20160401
  4. GONAL-F [Suspect]
     Active Substance: FOLLITROPIN
     Indication: SEXUALLY ACTIVE
     Dates: start: 20160321, end: 20160401

REACTIONS (3)
  - Ovarian haemorrhage [None]
  - Ovarian hyperstimulation syndrome [None]
  - Ovarian cyst [None]
